FAERS Safety Report 12836749 (Version 2)
Quarter: 2017Q1

REPORT INFORMATION
  Report Type: Report from Study
  Country: PL (occurrence: PL)
  Receive Date: 20161011
  Receipt Date: 20170105
  Transmission Date: 20170428
  Serious: Yes (Other)
  Sender: FDA-Public Use
  Company Number: PL-B.I. PHARMACEUTICALS,INC./RIDGEFIELD-2016-BI-065055

PATIENT
  Age: 68 Year
  Sex: Female
  Weight: 103.4 kg

DRUGS (8)
  1. NOLIPREL FORTE [Concomitant]
     Indication: HYPERTENSION
     Dosage: DAILY DOSE: 5MG + 1.25MG
     Route: 048
     Dates: start: 200805
  2. APO-AMLO [Concomitant]
     Indication: HYPERTENSION
     Route: 048
     Dates: start: 2008
  3. POLOCARD [Concomitant]
     Active Substance: ASPIRIN
     Indication: ANGINA PECTORIS
     Route: 048
     Dates: start: 1980
  4. MILURIT [Concomitant]
     Active Substance: ALLOPURINOL
     Indication: HYPERURICAEMIA
     Route: 048
     Dates: start: 201301
  5. BLINDED LINAGLIPTIN [Suspect]
     Active Substance: LINAGLIPTIN
     Indication: TYPE 2 DIABETES MELLITUS
     Route: 048
     Dates: start: 20150618
  6. SYMGLIC [Concomitant]
     Indication: TYPE 2 DIABETES MELLITUS
     Route: 048
     Dates: start: 20101027
  7. SIOFOR [Concomitant]
     Active Substance: METFORMIN HYDROCHLORIDE
     Indication: TYPE 2 DIABETES MELLITUS
     Route: 048
     Dates: start: 20080521
  8. GLUCOBAY [Concomitant]
     Active Substance: ACARBOSE
     Indication: TYPE 2 DIABETES MELLITUS
     Route: 048
     Dates: start: 2009

REACTIONS (1)
  - Tongue neoplasm [Not Recovered/Not Resolved]

NARRATIVE: CASE EVENT DATE: 20160715
